FAERS Safety Report 4558040-8 (Version None)
Quarter: 2005Q1

REPORT INFORMATION
  Report Type: 
  Country: None (occurrence: None)
  Receive Date: 20050121
  Receipt Date: 20040701
  Transmission Date: 20050727
  Serious: No
  Sender: FDA-Public Use
  Company Number: US-BRISTOL-MYERS SQUIBB COMPANY-12629846

PATIENT
  Age: 52 Year
  Sex: Male
  Weight: 75 kg

DRUGS (3)
  1. SERZONE [Suspect]
     Indication: ANXIETY
     Dosage: DURATION OF THERAPY: 4 TO 5 YEARS.
     Route: 048
     Dates: start: 19990101, end: 20040601
  2. SERZONE [Suspect]
     Indication: PANIC ATTACK
     Dosage: DURATION OF THERAPY: 4 TO 5 YEARS.
     Route: 048
     Dates: start: 19990101, end: 20040601
  3. SERZONE [Suspect]
     Indication: DEPRESSION
     Dosage: DURATION OF THERAPY: 4 TO 5 YEARS.
     Route: 048
     Dates: start: 19990101, end: 20040601

REACTIONS (1)
  - HEPATIC CYST [None]
